FAERS Safety Report 11437103 (Version 1)
Quarter: 2015Q3

REPORT INFORMATION
  Report Type: Spontaneous
  Country: US (occurrence: US)
  Receive Date: 20150821
  Receipt Date: 20150821
  Transmission Date: 20151125
  Serious: No
  Sender: FDA-Public Use
  Company Number: US-ELI_LILLY_AND_COMPANY-US200703000614

PATIENT
  Sex: Male

DRUGS (11)
  1. PERCODAN [Concomitant]
     Active Substance: ASPIRIN\OXYCODONE HYDROCHLORIDE
  2. ONE TABLET DAILY MENS FORMULA [Concomitant]
  3. VITAMIN B6 [Concomitant]
     Active Substance: PYRIDOXINE HYDROCHLORIDE
  4. CYMBALTA [Suspect]
     Active Substance: DULOXETINE HYDROCHLORIDE
     Dosage: 60 MG, UNK
     Dates: end: 20070228
  5. CYMBALTA [Suspect]
     Active Substance: DULOXETINE HYDROCHLORIDE
     Dosage: 30 MG, UNK
  6. CYMBALTA [Suspect]
     Active Substance: DULOXETINE HYDROCHLORIDE
     Indication: DEPRESSION
     Dosage: 60 MG, UNK
     Dates: start: 20061228
  7. TOPROL XL [Concomitant]
     Active Substance: METOPROLOL SUCCINATE
     Dosage: 100 MG, UNK
  8. VYTORIN [Concomitant]
     Active Substance: EZETIMIBE\SIMVASTATIN
  9. PROZAC [Suspect]
     Active Substance: FLUOXETINE HYDROCHLORIDE
     Indication: DEPRESSION
     Dosage: 20 MG, UNK
     Dates: start: 1993
  10. PROZAC [Suspect]
     Active Substance: FLUOXETINE HYDROCHLORIDE
     Dosage: 40 MG, UNK
  11. FLUOXETINE HYDROCHLORIDE. [Concomitant]
     Active Substance: FLUOXETINE HYDROCHLORIDE
     Indication: DEPRESSION
     Dosage: 40 MG, UNK
     Dates: start: 2006

REACTIONS (10)
  - Lethargy [Not Recovered/Not Resolved]
  - Drug ineffective [Recovered/Resolved]
  - Abdominal pain [Recovered/Resolved]
  - Vomiting [Not Recovered/Not Resolved]
  - Testicular pain [Recovered/Resolved]
  - Feeling abnormal [Not Recovered/Not Resolved]
  - Diarrhoea [Not Recovered/Not Resolved]
  - Asthenia [Not Recovered/Not Resolved]
  - Abdominal pain [Not Recovered/Not Resolved]
  - Testicular pain [Not Recovered/Not Resolved]

NARRATIVE: CASE EVENT DATE: 1993
